FAERS Safety Report 7954603-8 (Version None)
Quarter: 2011Q4

REPORT INFORMATION
  Report Type: 
  Country: None (occurrence: None)
  Receive Date: 20111202
  Receipt Date: 20111124
  Transmission Date: 20120403
  Serious: Yes (Hospitalization)
  Sender: FDA-Public Use
  Company Number: PHHY2011JP103139

PATIENT
  Age: 44 Year
  Sex: Male

DRUGS (5)
  1. PREDNISOLONE [Concomitant]
     Indication: RENAL TRANSPLANT
  2. TACROLIMUS [Concomitant]
     Indication: RENAL TRANSPLANT
  3. SIMULECT [Suspect]
     Indication: RENAL TRANSPLANT
     Dosage: 20 MG, UNK
     Route: 042
  4. MYCOPHENOLATE MOFETIL (CELLCEPT) [Concomitant]
     Indication: RENAL TRANSPLANT
  5. RITUXIMAB [Concomitant]
     Indication: RENAL TRANSPLANT

REACTIONS (1)
  - VENOUS THROMBOSIS LIMB [None]
